FAERS Safety Report 7946829-4 (Version None)
Quarter: 2011Q4

REPORT INFORMATION
  Report Type: 
  Country: None (occurrence: None)
  Receive Date: 20111125
  Receipt Date: 20111117
  Transmission Date: 20120403
  Serious: Yes (Other)
  Sender: FDA-Public Use
  Company Number: 2011SP054306

PATIENT
  Age: 75 Year
  Sex: Male

DRUGS (2)
  1. DICLOFENAC SODIUM [Concomitant]
  2. MIRTAZAPINE [Suspect]
     Indication: PAIN
     Dosage: 15 MG;QD;PO
     Route: 048
     Dates: start: 20110826

REACTIONS (1)
  - ARRHYTHMIA [None]
